FAERS Safety Report 15524461 (Version 1)
Quarter: 2018Q4

REPORT INFORMATION
  Report Type: Spontaneous
  Country: GB (occurrence: GB)
  Receive Date: 20181019
  Receipt Date: 20181019
  Transmission Date: 20190205
  Serious: Yes (Other)
  Sender: FDA-Public Use
  Company Number: PHHY2018GB129624

PATIENT
  Age: 78 Year
  Sex: Female
  Weight: 55.33 kg

DRUGS (1)
  1. DUOTRAV (ALC) [Suspect]
     Active Substance: TIMOLOL MALEATE\TRAVOPROST
     Indication: GLAUCOMA
     Dosage: 1 GTT, (IN EACH EYE OF 40 MICROGRAMS/ML+ 5 MG/ML)
     Route: 047

REACTIONS (3)
  - Eyelid irritation [Not Recovered/Not Resolved]
  - Product quality issue [Unknown]
  - Application site dryness [Not Recovered/Not Resolved]

NARRATIVE: CASE EVENT DATE: 20180810
